FAERS Safety Report 10185232 (Version 1)
Quarter: 2014Q2

REPORT INFORMATION
  Report Type: Spontaneous
  Country: FR (occurrence: FR)
  Receive Date: 20140521
  Receipt Date: 20140521
  Transmission Date: 20141212
  Serious: Yes (Hospitalization)
  Sender: FDA-Public Use
  Company Number: FR-PFIZER INC-2014134464

PATIENT
  Age: 61 Year
  Sex: Male

DRUGS (6)
  1. CAMPTO [Suspect]
     Dosage: 360 MG, CYCLIC (ONCE EVERY OTHER WEEK)
     Route: 042
     Dates: start: 20140218, end: 20140304
  2. AVASTIN [Concomitant]
     Dosage: 465 MG, 1 IN 2 WEEKS
     Route: 042
     Dates: start: 20140218
  3. ELVORINE [Concomitant]
     Dosage: 400 MG, 1 IN 2 WEEKS
     Route: 042
     Dates: start: 20140218
  4. FLUOROURACILE [Concomitant]
     Dosage: 800 MG, DAILY
     Route: 042
     Dates: start: 20140218
  5. ATROPINE [Concomitant]
     Dosage: 0.25 MG, DAILY
     Route: 042
     Dates: start: 20140218
  6. ONDANSETRON [Concomitant]
     Dosage: 8 MG, SINGLE
     Route: 042
     Dates: start: 20140218

REACTIONS (4)
  - Hypersensitivity [Recovered/Resolved]
  - Rash [Recovered/Resolved]
  - Dyspnoea [Recovered/Resolved]
  - Paraesthesia oral [Recovered/Resolved]
